FAERS Safety Report 6074332-8 (Version None)
Quarter: 2009Q1

REPORT INFORMATION
  Report Type: 
  Country: None (occurrence: None)
  Receive Date: 20090211
  Receipt Date: 20090210
  Transmission Date: 20090719
  Serious: No
  Sender: FDA-Public Use
  Company Number: US-B.I. PHARMACEUTICALS,INC./RIDGEFIELD-2009-BP-01709BP

PATIENT
  Sex: Male

DRUGS (3)
  1. FLOMAX [Suspect]
     Indication: BENIGN PROSTATIC HYPERPLASIA
     Dosage: .4MG
     Route: 048
     Dates: start: 20090201
  2. FLOMAX [Suspect]
     Dosage: .4MG
     Route: 048
     Dates: start: 20081201, end: 20090101
  3. INDERAL [Concomitant]

REACTIONS (1)
  - VISION BLURRED [None]
